FAERS Safety Report 7826136-0 (Version None)
Quarter: 2011Q4

REPORT INFORMATION
  Report Type: 
  Country: None (occurrence: None)
  Receive Date: 20111019
  Receipt Date: 20111012
  Transmission Date: 20120403
  Serious: Yes (Death)
  Sender: FDA-Public Use
  Company Number: US-CELGENEUS-163-21880-11101363

PATIENT
  Sex: Male
  Weight: 79.45 kg

DRUGS (7)
  1. ZOMETA [Concomitant]
     Route: 065
  2. PERCOCET [Concomitant]
     Route: 065
  3. ARANESP [Concomitant]
     Route: 065
  4. VITAMIN B-12 [Concomitant]
     Route: 065
  5. REVLIMID [Suspect]
     Indication: MULTIPLE MYELOMA
     Dosage: 10 MILLIGRAM
     Route: 048
     Dates: start: 20090301, end: 20110215
  6. DEXAMETHASONE [Concomitant]
     Dosage: 4 MILLIGRAM
     Route: 065
  7. VELCADE [Concomitant]
     Route: 065

REACTIONS (10)
  - FALL [None]
  - EPISTAXIS [None]
  - DISEASE PROGRESSION [None]
  - URINARY TRACT INFECTION [None]
  - HYPOCALCAEMIA [None]
  - ASTHENIA [None]
  - DEEP VEIN THROMBOSIS [None]
  - PANCYTOPENIA [None]
  - MULTIPLE MYELOMA [None]
  - FLUSHING [None]
